FAERS Safety Report 14187750 (Version 1)
Quarter: 2017Q4

REPORT INFORMATION
  Report Type: Spontaneous
  Country: US (occurrence: US)
  Receive Date: 20171114
  Receipt Date: 20171114
  Transmission Date: 20180321
  Serious: No
  Sender: FDA-Public Use
  Company Number: US-BAUSCH-BL-2017-024602

PATIENT
  Age: 45 Year
  Sex: Female
  Weight: 53.12 kg

DRUGS (5)
  1. TRETINOIN. [Suspect]
     Active Substance: TRETINOIN
     Indication: ACNE
  2. COLLAGEN [Concomitant]
     Active Substance: COLLAGEN
     Indication: THERAPEUTIC SKIN CARE TOPICAL
     Route: 061
  3. TRETINOIN. [Suspect]
     Active Substance: TRETINOIN
     Indication: SKIN TEXTURE ABNORMAL
  4. HYALURONIC ACID [Concomitant]
     Active Substance: HYALURONIC ACID
     Indication: THERAPEUTIC SKIN CARE TOPICAL
     Route: 061
  5. TRETINOIN. [Suspect]
     Active Substance: TRETINOIN
     Indication: ACNE
     Route: 061
     Dates: start: 20170812

REACTIONS (4)
  - Insomnia [Not Recovered/Not Resolved]
  - Pruritus [Not Recovered/Not Resolved]
  - Paraesthesia [Not Recovered/Not Resolved]
  - Product quality issue [Unknown]

NARRATIVE: CASE EVENT DATE: 20170812
